FAERS Safety Report 7771368-3 (Version None)
Quarter: 2011Q3

REPORT INFORMATION
  Report Type: 
  Country: None (occurrence: None)
  Receive Date: 20110920
  Receipt Date: 20110905
  Transmission Date: 20111222
  Serious: Yes (Hospitalization)
  Sender: FDA-Public Use
  Company Number: AUR-APL-2011-03491

PATIENT
  Age: 66 Year
  Sex: Female
  Weight: 59.4 kg

DRUGS (2)
  1. CHANTIX [Suspect]
     Indication: SMOKING CESSATION THERAPY
     Dosage: 0.5 MG, 1 D, ORAL
     Route: 048
     Dates: start: 20110612, end: 20110601
  2. LISINOPRIL AND HYDROCHLOROTHIAZIDE [Suspect]
     Indication: HYPERTENSION
     Dosage: 20/25MG (1 D), ORAL
     Route: 048

REACTIONS (5)
  - BLOOD SODIUM DECREASED [None]
  - INCORRECT DRUG DOSAGE FORM ADMINISTERED [None]
  - DRUG EFFECT DECREASED [None]
  - DRUG ADMINISTRATION ERROR [None]
  - DECREASED ACTIVITY [None]
